FAERS Safety Report 9108461 (Version 2)
Quarter: 2013Q2

REPORT INFORMATION
  Report Type: Spontaneous
  Country: US (occurrence: US)
  Receive Date: 20130222
  Receipt Date: 20130402
  Transmission Date: 20140414
  Serious: Yes (Hospitalization)
  Sender: FDA-Public Use
  Company Number: US-009507513-1302USA009931

PATIENT
  Age: 31 Year
  Sex: Male

DRUGS (4)
  1. JANUMET [Suspect]
     Indication: DIABETES MELLITUS
     Dosage: 1 DF, BID
     Route: 048
     Dates: start: 201206
  2. ZOCOR [Concomitant]
  3. XALATAN [Concomitant]
  4. NEXIUM [Concomitant]
     Dosage: UNK

REACTIONS (1)
  - Pericarditis [Recovering/Resolving]
